FAERS Safety Report 9158343 (Version 2)
Quarter: 2013Q2

REPORT INFORMATION
  Report Type: Spontaneous
  Country: US (occurrence: US)
  Receive Date: 20130312
  Receipt Date: 20130409
  Transmission Date: 20140414
  Serious: Yes (Life-Threatening)
  Sender: FDA-Public Use
  Company Number: US-BAYER-2013-030076

PATIENT
  Age: 55 Year
  Sex: Male
  Weight: 106.58 kg

DRUGS (3)
  1. NEXAVAR [Suspect]
     Indication: METASTATIC RENAL CELL CARCINOMA
     Dosage: 400 MG, BID (2 DOSES)
     Route: 048
  2. CONTRAST MEDIA [Concomitant]
     Indication: COMPUTERISED TOMOGRAM
     Dosage: UNK
     Route: 042
     Dates: start: 20130228
  3. ACE INHIBITOR NOS [Concomitant]

REACTIONS (1)
  - Angioedema [None]
